FAERS Safety Report 11924604 (Version 1)
Quarter: 2016Q1

REPORT INFORMATION
  Report Type: Spontaneous
  Country: TN (occurrence: TN)
  Receive Date: 20160118
  Receipt Date: 20160118
  Transmission Date: 20160526
  Serious: Yes (Hospitalization, Other)
  Sender: FDA-Public Use
  Company Number: TN-GLAXOSMITHKLINE-TN2016GSK005202

PATIENT
  Age: 26 Year
  Sex: Female

DRUGS (1)
  1. SALBUTAMOL [Suspect]
     Active Substance: ALBUTEROL
     Dosage: 50 UG, UNK

REACTIONS (19)
  - Pulmonary oedema [Unknown]
  - Anxiety [Unknown]
  - Brain natriuretic peptide increased [Unknown]
  - Wheezing [Unknown]
  - Oxygen saturation decreased [Unknown]
  - Abdominal distension [Unknown]
  - Hypokalaemia [Unknown]
  - Hyperhidrosis [Unknown]
  - Infection [Unknown]
  - Respiratory failure [Unknown]
  - Acidosis [Unknown]
  - Rales [Unknown]
  - Myocardial ischaemia [Unknown]
  - Depressed level of consciousness [Unknown]
  - Tachypnoea [Unknown]
  - Leukocytosis [Unknown]
  - Hypokinesia [Unknown]
  - Dyspnoea [Unknown]
  - Hypoxia [Unknown]
